FAERS Safety Report 23308147 (Version 3)
Quarter: 2024Q1

REPORT INFORMATION
  Report Type: Spontaneous
  Country: US (occurrence: US)
  Receive Date: 20231218
  Receipt Date: 20240119
  Transmission Date: 20240410
  Serious: Yes (Death, Other)
  Sender: FDA-Public Use
  Company Number: US-009507513-2312USA005276

PATIENT
  Sex: Female

DRUGS (13)
  1. KEYTRUDA [Suspect]
     Active Substance: PEMBROLIZUMAB
     Indication: Fallopian tube cancer
     Dosage: 200 MILLIGRAM, EVERY 21 DAYS
     Route: 042
     Dates: start: 20230131, end: 20230404
  2. AVASTIN [Suspect]
     Active Substance: BEVACIZUMAB
     Indication: Fallopian tube cancer
     Dosage: 15 (UNSPECIFIED)
     Dates: start: 20230131
  3. CYTOXAN [Suspect]
     Active Substance: CYCLOPHOSPHAMIDE
     Indication: Fallopian tube neoplasm
     Dosage: 50 (UNSPECIFIED), QD
     Dates: start: 20230131
  4. DOXIL [Suspect]
     Active Substance: DOXORUBICIN HYDROCHLORIDE
     Indication: Fallopian tube cancer
     Dosage: UNK
     Dates: start: 202305
  5. CARBOPLATIN [Suspect]
     Active Substance: CARBOPLATIN
     Indication: Fallopian tube neoplasm
     Dosage: UNK
     Dates: start: 202305
  6. XANAX [Concomitant]
     Active Substance: ALPRAZOLAM
     Dosage: 0.25 MILLIGRAM, PRN
     Route: 048
  7. PROZAC [Concomitant]
     Active Substance: FLUOXETINE HYDROCHLORIDE
     Dosage: 10 MILLIGRAM, QD
     Route: 048
  8. ZYPREXA [Concomitant]
     Active Substance: OLANZAPINE
     Dosage: 1 DOSAGE FORM, HS
     Route: 048
  9. PRILOSEC [Concomitant]
     Active Substance: OMEPRAZOLE MAGNESIUM
     Dosage: 1 DOSAGE FORM, QD
     Route: 048
  10. ZOFRAN [Concomitant]
     Active Substance: ONDANSETRON HYDROCHLORIDE
     Indication: Nausea
     Dosage: 1 DOSAGE FORM, Q8H
     Route: 048
  11. ZOFRAN [Concomitant]
     Active Substance: ONDANSETRON HYDROCHLORIDE
     Indication: Vomiting
     Dosage: 1 DOSAGE FORM, Q6H
     Route: 048
  12. PERCOCET [Concomitant]
     Active Substance: ACETAMINOPHEN\OXYCODONE HYDROCHLORIDE
     Indication: Pain
     Dosage: 1 DOSAGE FORM, PRN
     Route: 048
  13. KENALOG [Concomitant]
     Active Substance: TRIAMCINOLONE ACETONIDE
     Dosage: UNK, BID
     Route: 061

REACTIONS (44)
  - Malignant neoplasm progression [Fatal]
  - Ascites [Unknown]
  - Cachexia [Unknown]
  - Abdominal pain lower [Unknown]
  - Frequent bowel movements [Unknown]
  - Fatigue [Unknown]
  - Decreased appetite [Unknown]
  - Nausea [Unknown]
  - Feeling guilty [Unknown]
  - Tinnitus [Unknown]
  - Cough [Unknown]
  - Vomiting [Unknown]
  - Asthenia [Unknown]
  - Pain [Unknown]
  - General physical health deterioration [Unknown]
  - Anxiety [Unknown]
  - Skin discolouration [Unknown]
  - Pulse abnormal [Unknown]
  - Red blood cell count decreased [Unknown]
  - Haemoglobin decreased [Unknown]
  - Haematocrit decreased [Unknown]
  - Mean cell volume increased [Unknown]
  - Red cell distribution width increased [Unknown]
  - Platelet count decreased [Unknown]
  - Immature platelet fraction increased [Unknown]
  - Neutrophil percentage increased [Unknown]
  - Lymphocyte percentage decreased [Unknown]
  - Metamyelocyte percentage increased [Unknown]
  - Lymphocyte count decreased [Unknown]
  - Blood potassium decreased [Unknown]
  - Blood chloride decreased [Unknown]
  - Blood glucose increased [Unknown]
  - Blood calcium decreased [Unknown]
  - Protein total decreased [Unknown]
  - Blood albumin decreased [Unknown]
  - Carbohydrate antigen 125 increased [Unknown]
  - Band neutrophil percentage increased [Unknown]
  - Myelocyte percentage increased [Unknown]
  - Neutrophil count increased [Unknown]
  - Neutrophil toxic granulation present [Unknown]
  - White blood cell morphology abnormal [Unknown]
  - Protein urine present [Unknown]
  - Urobilinogen urine increased [Unknown]
  - White blood cells urine positive [Unknown]

NARRATIVE: CASE EVENT DATE: 20230101
